FAERS Safety Report 6717117-9 (Version None)
Quarter: 2010Q2

REPORT INFORMATION
  Report Type: 
  Country: None (occurrence: None)
  Receive Date: 20100510
  Receipt Date: 20100510
  Transmission Date: 20101027
  Serious: Yes (Life-Threatening, Hospitalization)
  Sender: FDA-Public Use
  Company Number: None

PATIENT
  Age: 2 Year
  Sex: Male
  Weight: 15.8759 kg

DRUGS (2)
  1. TYLENOL CHILDRENS SUSPENSION MCNEIL [Suspect]
     Indication: PYREXIA
     Dosage: 3/4 TSP 4-6 HOURS
     Dates: start: 20100425, end: 20100425
  2. CHILDREN'S MOTRIN [Suspect]
     Indication: PYREXIA
     Dosage: 1/2 TSP 4-6 HOURS
     Dates: start: 20100425, end: 20100425

REACTIONS (7)
  - ABNORMAL BEHAVIOUR [None]
  - BACTERIAL INFECTION [None]
  - CONVULSION [None]
  - FEELING ABNORMAL [None]
  - PRODUCT QUALITY ISSUE [None]
  - RESPIRATORY ARREST [None]
  - UNRESPONSIVE TO STIMULI [None]
